FAERS Safety Report 20341382 (Version 1)
Quarter: 2022Q1

REPORT INFORMATION
  Report Type: Spontaneous
  Country: GB (occurrence: GB)
  Receive Date: 20220117
  Receipt Date: 20220117
  Transmission Date: 20220423
  Serious: Yes (Other)
  Sender: FDA-Public Use
  Company Number: None

PATIENT
  Age: 23 Year
  Sex: Female

DRUGS (1)
  1. MEDROXYPROGESTERONE\MEDROXYPROGESTERONE ACETATE [Suspect]
     Active Substance: MEDROXYPROGESTERONE\MEDROXYPROGESTERONE ACETATE
     Indication: Contraception
     Dosage: UNK
     Route: 051
     Dates: start: 202011, end: 202107

REACTIONS (4)
  - Injection site atrophy [Not Recovered/Not Resolved]
  - Injection site pain [Not Recovered/Not Resolved]
  - Scar [Not Recovered/Not Resolved]
  - Emotional disorder [Not Recovered/Not Resolved]
